FAERS Safety Report 9733808 (Version 1)
Quarter: 2013Q4

REPORT INFORMATION
  Report Type: Spontaneous
  Country: US (occurrence: US)
  Receive Date: 20131205
  Receipt Date: 20131205
  Transmission Date: 20140711
  Serious: No
  Sender: FDA-Public Use
  Company Number: US-PFIZER INC-2013344335

PATIENT
  Sex: Male

DRUGS (2)
  1. INLYTA [Suspect]
     Dosage: 3 MG, 2X/DAY
  2. INLYTA [Suspect]
     Dosage: 5 MG, 2X/DAY

REACTIONS (1)
  - Drug intolerance [Unknown]
